FAERS Safety Report 7090277-9 (Version None)
Quarter: 2010Q4

REPORT INFORMATION
  Report Type: 
  Country: None (occurrence: None)
  Receive Date: 20101105
  Receipt Date: 20101105
  Transmission Date: 20110411
  Serious: Yes (Other)
  Sender: FDA-Public Use
  Company Number: None

PATIENT
  Age: 70 Year
  Sex: Male
  Weight: 90.7194 kg

DRUGS (2)
  1. FORADIL [Suspect]
     Indication: ASTHMA
     Dates: start: 20091001, end: 20101103
  2. FORADIL [Suspect]
     Indication: CHRONIC OBSTRUCTIVE PULMONARY DISEASE
     Dates: start: 20091001, end: 20101103

REACTIONS (2)
  - MUSCLE SPASMS [None]
  - MYALGIA [None]
